FAERS Safety Report 5405777-4 (Version None)
Quarter: 2007Q3

REPORT INFORMATION
  Report Type: 
  Country: None (occurrence: None)
  Receive Date: 20070806
  Receipt Date: 20070724
  Transmission Date: 20080115
  Serious: Yes (Death)
  Sender: FDA-Public Use
  Company Number: FR-JNJFOC-20070606079

PATIENT
  Age: 27 Year
  Sex: Male
  Weight: 82 kg

DRUGS (2)
  1. RISPERDAL CONSTA [Suspect]
     Indication: PSYCHOTIC DISORDER
     Route: 030
  2. RISPERDAL [Suspect]
     Indication: PSYCHOTIC DISORDER
     Route: 048

REACTIONS (2)
  - COMPLETED SUICIDE [None]
  - DISSOCIATION [None]
